FAERS Safety Report 23422170 (Version 1)
Quarter: 2024Q1

REPORT INFORMATION
  Report Type: Report from Study
  Country: CO (occurrence: CO)
  Receive Date: 20240119
  Receipt Date: 20240119
  Transmission Date: 20240410
  Serious: Yes (Other)
  Sender: FDA-Public Use
  Company Number: CO-JNJFOC-20240133892

PATIENT
  Age: 68 Year
  Sex: Female
  Weight: 66 kg

DRUGS (3)
  1. SIMPONI [Suspect]
     Active Substance: GOLIMUMAB
     Indication: Rheumatoid arthritis
     Dosage: LATEST DRUG APPLICATION: 04-DEC-2023
     Route: 058
     Dates: start: 20150212
  2. ACETAMINOPHEN [Concomitant]
     Active Substance: ACETAMINOPHEN
  3. PFIZER-BIONTECH COVID-19 VACCINE [Concomitant]
     Active Substance: TOZINAMERAN
     Indication: COVID-19 immunisation
     Dosage: FIRST DOSE
     Dates: start: 20210613

REACTIONS (5)
  - Viral infection [Not Recovered/Not Resolved]
  - Bone pain [Not Recovered/Not Resolved]
  - Mental disorder [Unknown]
  - Intraocular lens implant [Unknown]
  - Discouragement [Unknown]

NARRATIVE: CASE EVENT DATE: 20231201
